FAERS Safety Report 7789920-8 (Version None)
Quarter: 2011Q3

REPORT INFORMATION
  Report Type: 
  Country: None (occurrence: None)
  Receive Date: 20110930
  Receipt Date: 20110308
  Transmission Date: 20111222
  Serious: No
  Sender: FDA-Public Use
  Company Number: US-ASTRAZENECA-2011SE12842

PATIENT
  Age: 46 Year
  Sex: Female

DRUGS (3)
  1. VITAMIN TAB [Concomitant]
  2. ARIMIDEX [Suspect]
     Route: 048
     Dates: start: 20100101
  3. ARIMIDEX [Suspect]
     Route: 048

REACTIONS (3)
  - ANXIETY [None]
  - WEIGHT INCREASED [None]
  - HYPERTENSION [None]
